FAERS Safety Report 4696558-8 (Version None)
Quarter: 2005Q2

REPORT INFORMATION
  Report Type: 
  Country: None (occurrence: None)
  Receive Date: 20050620
  Receipt Date: 20050608
  Transmission Date: 20051028
  Serious: Yes (Hospitalization, Disabling)
  Sender: FDA-Public Use
  Company Number: 230120M05USA

PATIENT
  Age: 55 Year
  Sex: Female

DRUGS (5)
  1. REBIF [Suspect]
     Indication: MULTIPLE SCLEROSIS
     Dosage: 44 MCG, 3 IN 1 WEEKS, SUBCUTANEOUS
     Route: 058
     Dates: start: 20050401, end: 20050521
  2. PROVIGIL [Concomitant]
  3. PREMPRO 14/14 [Concomitant]
  4. LIPITOR [Concomitant]
  5. ACTONEL [Concomitant]

REACTIONS (6)
  - AMYLOIDOSIS [None]
  - ANGIOPATHY [None]
  - ARTERIOVENOUS MALFORMATION [None]
  - CEREBRAL HAEMORRHAGE [None]
  - HEMIPLEGIA [None]
  - TRANSIENT ISCHAEMIC ATTACK [None]
